FAERS Safety Report 25114884 (Version 1)
Quarter: 2025Q1

REPORT INFORMATION
  Report Type: Spontaneous
  Country: US (occurrence: None)
  Receive Date: 20250324
  Receipt Date: 20250324
  Transmission Date: 20250409
  Serious: Yes (Hospitalization)
  Sender: FDA-CTU
  Company Number: None

PATIENT
  Sex: Female

DRUGS (1)
  1. DEFERASIROX [Suspect]
     Active Substance: DEFERASIROX
     Indication: Thalassaemia beta
     Dosage: 360 MG DAILY ORAL ?
     Route: 048
     Dates: start: 20230914

REACTIONS (3)
  - Haematological malignancy [None]
  - Drug hypersensitivity [None]
  - Diabetes mellitus [None]
